FAERS Safety Report 22641820 (Version 1)
Quarter: 2023Q2

REPORT INFORMATION
  Report Type: Spontaneous
  Country: FR (occurrence: FR)
  Receive Date: 20230626
  Receipt Date: 20230626
  Transmission Date: 20230721
  Serious: Yes (Hospitalization)
  Sender: FDA-Public Use
  Company Number: None

PATIENT
  Age: 93 Year
  Sex: Female
  Weight: 42 kg

DRUGS (7)
  1. SPIRONOLACTONE [Suspect]
     Active Substance: SPIRONOLACTONE
     Indication: Oedema due to cardiac disease
     Dosage: 25 MILLIGRAM DAILY; 25 MG/DAY, LONG TERM
     Dates: end: 20230528
  2. FUROSEMIDE [Suspect]
     Active Substance: FUROSEMIDE
     Indication: Oedema due to cardiac disease
     Dosage: 2 DOSAGE FORMS DAILY; 2 CP PER DAY, LONG TERM
  3. ALTHIAZIDE [Suspect]
     Active Substance: ALTHIAZIDE
     Indication: Oedema due to cardiac disease
     Dosage: 15 MILLIGRAM DAILY; 15 MG/DAY, LONG TERM
     Dates: end: 20230528
  4. PRADAXA [Suspect]
     Active Substance: DABIGATRAN ETEXILATE MESYLATE
     Indication: Atrial fibrillation
     Dosage: 1 DOSAGE FORMS DAILY; 1 TAB PER DAY, LONG TERM
     Dates: end: 20230529
  5. CHOLECALCIFEROL [Concomitant]
     Active Substance: CHOLECALCIFEROL
     Indication: Product used for unknown indication
     Dosage: IN THE LONG TERM   ,  ORAL SOLUTION IN AMPOULE
  6. DAFALGAN [Concomitant]
     Active Substance: ACETAMINOPHEN
     Indication: Product used for unknown indication
     Dosage: IN THE LONG TERM
  7. PRAVASTATIN SODIUM [Concomitant]
     Active Substance: PRAVASTATIN SODIUM
     Indication: Product used for unknown indication
     Dosage: IN THE LONG TERM  , PRAVASTATINE SODIQUE

REACTIONS (2)
  - Haematoma [Recovering/Resolving]
  - Hyponatraemia [Recovering/Resolving]

NARRATIVE: CASE EVENT DATE: 20230528
